FAERS Safety Report 20947216 (Version 3)
Quarter: 2022Q3

REPORT INFORMATION
  Report Type: Spontaneous
  Country: BR (occurrence: BR)
  Receive Date: 20220610
  Receipt Date: 20220714
  Transmission Date: 20221026
  Serious: Yes (Death, Hospitalization, Disabling, Other)
  Sender: FDA-Public Use
  Company Number: BR-PFIZER INC-202200797957

PATIENT
  Sex: Female
  Weight: 56.8 kg

DRUGS (13)
  1. AVIBACTAM SODIUM\CEFTAZIDIME [Suspect]
     Active Substance: AVIBACTAM SODIUM\CEFTAZIDIME
     Indication: Urinary tract infection bacterial
     Dosage: ACTUAL: 110ML IN 2 HOURS EVERY 8 HOURS
     Route: 042
     Dates: start: 20220429, end: 20220509
  2. AVIBACTAM SODIUM\CEFTAZIDIME [Suspect]
     Active Substance: AVIBACTAM SODIUM\CEFTAZIDIME
     Indication: Klebsiella sepsis
  3. HEPARIN SODIUM [Concomitant]
     Active Substance: HEPARIN SODIUM
     Dosage: 5000 IU, BID
     Dates: start: 20220331, end: 20220509
  4. LINAGLIPTIN [Concomitant]
     Active Substance: LINAGLIPTIN
     Dosage: 5 MG, QD
     Dates: start: 20220326, end: 20220430
  5. BISOPROLOL [Concomitant]
     Active Substance: BISOPROLOL
     Dosage: 2.5 MG, QD
     Dates: start: 20220406, end: 20220514
  6. EMPAGLIFLOZIN [Concomitant]
     Active Substance: EMPAGLIFLOZIN
     Dosage: 0.5 DF, QD
     Dates: start: 20220421, end: 20220430
  7. CAPTOPRIL [Concomitant]
     Active Substance: CAPTOPRIL
     Dosage: 25 MG, TID
     Dates: start: 20220405, end: 20220430
  8. LANTUS [Concomitant]
     Active Substance: INSULIN GLARGINE
     Dosage: 16 IU, QD
     Dates: start: 20220409
  9. OMEPRAZOLE [Concomitant]
     Active Substance: OMEPRAZOLE
     Dosage: 20 MG
     Dates: start: 20220403, end: 20220520
  10. DIPIRONA SODICA [Concomitant]
     Dosage: 1 G, Q4HR
     Dates: start: 20220326, end: 20220522
  11. ONDANSETRON HYDROCHLORIDE [Concomitant]
     Active Substance: ONDANSETRON HYDROCHLORIDE
     Dosage: 8 MG, TID
     Dates: start: 20220429, end: 20220515
  12. DOBUTAMINE [Concomitant]
     Active Substance: DOBUTAMINE HYDROCHLORIDE
  13. HEMITARTARATO DE NOREPINEFRINA [Concomitant]
     Dosage: 4 ML

REACTIONS (5)
  - Ventricular tachycardia [Fatal]
  - Cardio-respiratory arrest [Fatal]
  - Electroencephalogram abnormal [Recovered/Resolved]
  - Myoclonus [Recovered/Resolved]
  - Product preparation error [Unknown]

NARRATIVE: CASE EVENT DATE: 20220430
